FAERS Safety Report 13006743 (Version 1)
Quarter: 2016Q4

REPORT INFORMATION
  Report Type: Spontaneous
  Country: BR (occurrence: BR)
  Receive Date: 20161207
  Receipt Date: 20161207
  Transmission Date: 20170207
  Serious: Yes (Death)
  Sender: FDA-Public Use
  Company Number: BR-SA-2016SA161583

PATIENT
  Age: 76 Year
  Sex: Male
  Weight: 57 kg

DRUGS (1)
  1. CEREZYME [Suspect]
     Active Substance: IMIGLUCERASE
     Indication: GAUCHER^S DISEASE TYPE I
     Dosage: DOSE: 10 VIALS
     Route: 042
     Dates: start: 20130122, end: 20160727

REACTIONS (5)
  - Lung neoplasm malignant [Fatal]
  - Chronic obstructive pulmonary disease [Unknown]
  - Myalgia [Unknown]
  - Arthralgia [Unknown]
  - Weight decreased [Unknown]
